FAERS Safety Report 11963291 (Version 1)
Quarter: 2016Q1

REPORT INFORMATION
  Report Type: Spontaneous
  Country: US (occurrence: None)
  Receive Date: 20160121
  Receipt Date: 20160121
  Transmission Date: 20160526
  Serious: No
  Sender: FDA-Public Use
  Company Number: None

PATIENT
  Age: 54 Year
  Sex: Female
  Weight: 91.63 kg

DRUGS (2)
  1. PROMETHAZINE [Suspect]
     Active Substance: PROMETHAZINE\PROMETHAZINE HYDROCHLORIDE
     Indication: PROCEDURAL PAIN
     Dosage: 1-2 PILLS A DAY, ONCE DAILY, TAKEN BY MOUTH
     Dates: start: 20160119, end: 20160119
  2. LOSTRAIN [Concomitant]

REACTIONS (3)
  - Feeling abnormal [None]
  - Presyncope [None]
  - Muscle twitching [None]

NARRATIVE: CASE EVENT DATE: 20160119
